FAERS Safety Report 12867184 (Version 2)
Quarter: 2016Q4

REPORT INFORMATION
  Report Type: Spontaneous
  Country: US (occurrence: US)
  Receive Date: 20161020
  Receipt Date: 20161222
  Transmission Date: 20170207
  Serious: No
  Sender: FDA-Public Use
  Company Number: US-JAZZ-2016-US-014657

PATIENT
  Age: 49 Year
  Sex: Female
  Weight: 151.93 kg

DRUGS (48)
  1. MIRAPEX [Concomitant]
     Active Substance: PRAMIPEXOLE DIHYDROCHLORIDE
     Indication: RESTLESS LEGS SYNDROME
  2. VITAMIN C [Concomitant]
     Active Substance: ASCORBIC ACID
  3. EXCEDRIN EXTRA STRENGTH [Concomitant]
     Active Substance: ACETAMINOPHEN\ASPIRIN\CAFFEINE
  4. MIGRANAL [Concomitant]
     Active Substance: DIHYDROERGOTAMINE MESYLATE
  5. VITAMIN D3 [Concomitant]
     Active Substance: CHOLECALCIFEROL
  6. LIDEX [Concomitant]
     Active Substance: FLUOCINONIDE
     Dosage: UNK, PRN
  7. COLACE [Concomitant]
     Active Substance: DOCUSATE SODIUM
  8. ALBUTEROL. [Concomitant]
     Active Substance: ALBUTEROL
     Indication: ASTHMA
  9. XYREM [Suspect]
     Active Substance: SODIUM OXYBATE
     Indication: NARCOLEPSY
     Dosage: 2.25 G, BID
     Route: 048
     Dates: start: 201607, end: 201607
  10. BISACODYL. [Concomitant]
     Active Substance: BISACODYL
  11. CYMBALTA [Concomitant]
     Active Substance: DULOXETINE HYDROCHLORIDE
     Indication: DEPRESSION
  12. MIRALAX [Concomitant]
     Active Substance: POLYETHYLENE GLYCOL 3350
  13. NEURONTIN [Concomitant]
     Active Substance: GABAPENTIN
  14. TERAZOL 3 [Concomitant]
     Active Substance: TERCONAZOLE
  15. BACTROBAN [Concomitant]
     Active Substance: MUPIROCIN\MUPIROCIN CALCIUM
  16. PERIDEX [Concomitant]
     Active Substance: CHLORHEXIDINE GLUCONATE
  17. GENTEAL MILD [Concomitant]
     Active Substance: HYPROMELLOSE 2910 (4000 MPA.S)
  18. ALLEGRA [Concomitant]
     Active Substance: FEXOFENADINE HYDROCHLORIDE
  19. CALCIUM [Concomitant]
     Active Substance: CALCIUM
  20. XYREM [Suspect]
     Active Substance: SODIUM OXYBATE
     Indication: CATAPLEXY
     Dosage: 3 G, BID
     Route: 048
     Dates: start: 201607
  21. ADDERALL XR [Concomitant]
     Active Substance: AMPHETAMINE ASPARTATE\AMPHETAMINE SULFATE\DEXTROAMPHETAMINE SACCHARATE\DEXTROAMPHETAMINE SULFATE
     Indication: NARCOLEPSY
  22. ASPIRIN. [Concomitant]
     Active Substance: ASPIRIN
  23. CARBOXYMETHYLCELLULOSE [Concomitant]
     Active Substance: CARBOXYMETHYLCELLULOSE
  24. EPIPEN [Concomitant]
     Active Substance: EPINEPHRINE
     Dosage: UNK, PRN
  25. ROBAXIN [Concomitant]
     Active Substance: METHOCARBAMOL
  26. SULFASALAZINE. [Concomitant]
     Active Substance: SULFASALAZINE
     Indication: RHEUMATOID ARTHRITIS
  27. VENTOLIN HFA [Concomitant]
     Active Substance: ALBUTEROL SULFATE
  28. DIHYDROERGOTAMINE [Concomitant]
     Active Substance: DIHYDROERGOTAMINE
     Indication: MIGRAINE
  29. FISH OIL CONCENTRATE [Concomitant]
     Active Substance: FISH OIL
  30. VIIBRYD [Concomitant]
     Active Substance: VILAZODONE HYDROCHLORIDE
  31. ADDERALL [Concomitant]
     Active Substance: AMPHETAMINE ASPARTATE\AMPHETAMINE SULFATE\DEXTROAMPHETAMINE SACCHARATE\DEXTROAMPHETAMINE SULFATE
  32. FLAXSEED [Concomitant]
     Active Substance: FLAX SEED
  33. NEXIUM [Concomitant]
     Active Substance: ESOMEPRAZOLE MAGNESIUM
     Indication: GASTROOESOPHAGEAL REFLUX DISEASE
  34. PLAQUENIL [Concomitant]
     Active Substance: HYDROXYCHLOROQUINE SULFATE
     Indication: RHEUMATOID ARTHRITIS
  35. TYLENOL EXTRA STRENGTH [Concomitant]
     Active Substance: ACETAMINOPHEN
  36. VITAMIN B6 [Concomitant]
     Active Substance: PYRIDOXINE HYDROCHLORIDE
  37. VITAMIN B12 [Concomitant]
     Active Substance: CYANOCOBALAMIN
  38. FERROUS SULFATE. [Concomitant]
     Active Substance: FERROUS SULFATE
  39. METFORMIN HCL [Concomitant]
     Active Substance: METFORMIN HYDROCHLORIDE
     Indication: DIABETES MELLITUS
  40. SYNTHROID [Concomitant]
     Active Substance: LEVOTHYROXINE SODIUM
     Indication: HYPOTHYROIDISM
  41. OXYBUTYNIN [Concomitant]
     Active Substance: OXYBUTYNIN
     Indication: BLADDER DISORDER
  42. CALCIUM +D [Concomitant]
     Active Substance: CALCIUM\VITAMIN D
  43. DITROPAN [Concomitant]
     Active Substance: OXYBUTYNIN CHLORIDE
  44. FLUOCINONIDE. [Concomitant]
     Active Substance: FLUOCINONIDE
  45. HYPROMELLOSE [Concomitant]
     Active Substance: HYPROMELLOSES
  46. LAMISIL [Concomitant]
     Active Substance: TERBINAFINE HYDROCHLORIDE
  47. PROCHLORPERAZINE EDISYLATE. [Concomitant]
     Active Substance: PROCHLORPERAZINE EDISYLATE
  48. TROLAMINE SALICYLATE. [Concomitant]
     Active Substance: TROLAMINE SALICYLATE

REACTIONS (4)
  - Sinusitis [Recovering/Resolving]
  - Vertigo [Unknown]
  - Eustachian tube obstruction [Not Recovered/Not Resolved]
  - Nausea [Unknown]

NARRATIVE: CASE EVENT DATE: 201607
